FAERS Safety Report 24830466 (Version 2)
Quarter: 2025Q1

REPORT INFORMATION
  Report Type: Spontaneous
  Country: US (occurrence: US)
  Receive Date: 20250110
  Receipt Date: 20250213
  Transmission Date: 20250408
  Serious: No
  Sender: PFIZER
  Company Number: US-PFIZER INC-202500006038

PATIENT
  Age: 42 Year
  Sex: Male

DRUGS (1)
  1. VELSIPITY [Suspect]
     Active Substance: ETRASIMOD ARGININE

REACTIONS (2)
  - Vision blurred [Unknown]
  - Eye disorder [Unknown]

NARRATIVE: CASE EVENT DATE: 20240801
